FAERS Safety Report 10158628 (Version 1)
Quarter: 2014Q2

REPORT INFORMATION
  Report Type: Report from Study
  Country: GB (occurrence: GB)
  Receive Date: 20140508
  Receipt Date: 20140508
  Transmission Date: 20141212
  Serious: Yes (Hospitalization)
  Sender: FDA-Public Use
  Company Number: GB-ROCHE-1395407

PATIENT
  Age: 83 Year
  Sex: Male
  Weight: 50.3 kg

DRUGS (7)
  1. RITUXIMAB [Suspect]
     Indication: WALDENSTROM^S MACROGLOBULINAEMIA
     Dosage: DATE OF LAST DOSE PRIOR TO SAE: 09/APR/2014
     Route: 042
     Dates: start: 20140409
  2. CYCLOPHOSPHAMIDE [Suspect]
     Indication: WALDENSTROM^S MACROGLOBULINAEMIA
     Dosage: DATE OF LAST DOSE PRIOR TO SAE: 11/APR/2014
     Route: 048
     Dates: start: 20140313
  3. FLUDARABINE [Suspect]
     Indication: WALDENSTROM^S MACROGLOBULINAEMIA
     Dosage: DATE OF LAST DOSE PRIOR TO SAE: 11/APR/2014
     Route: 048
     Dates: start: 20140313
  4. TIMOLOL [Concomitant]
     Indication: GLAUCOMA
     Dosage: TOTAL DAILY DOSE: 1 DROP. DATE OF LAST DOSE PRIOR TO SAE: 17/04/2014
     Route: 005
  5. AZARGA [Concomitant]
     Indication: GLAUCOMA
     Dosage: TOTAL DAILY DOSE: 1 DROP. DATE OF LAST DOSE PRIOR TO SAE: 17/04/2014
     Route: 065
  6. VITAMIN C [Concomitant]
  7. OMEGA 3 [Concomitant]
     Dosage: DATE OF LAST DOSE PRIOR TO SAE: 17/APR/2014
     Route: 065

REACTIONS (4)
  - Febrile neutropenia [Recovered/Resolved]
  - Diarrhoea [Recovered/Resolved]
  - Lethargy [Recovered/Resolved]
  - Neutropenia [Not Recovered/Not Resolved]
